FAERS Safety Report 7472399-3 (Version None)
Quarter: 2011Q2

REPORT INFORMATION
  Report Type: 
  Country: None (occurrence: None)
  Receive Date: 20110511
  Receipt Date: 20110428
  Transmission Date: 20111010
  Serious: Yes (Death, Hospitalization)
  Sender: FDA-Public Use
  Company Number: PHHY2011CN35856

PATIENT
  Age: 14 Year
  Sex: Female

DRUGS (1)
  1. TRILEPTAL [Suspect]
     Indication: PARTIAL SEIZURES
     Dosage: 150 MG, UNK
     Route: 048
     Dates: start: 20091115

REACTIONS (8)
  - RENAL HYPERTENSION [None]
  - PARTIAL SEIZURES [None]
  - CARDIAC FUNCTION TEST ABNORMAL [None]
  - NEPHROGENIC ANAEMIA [None]
  - TONIC CONVULSION [None]
  - POLYMYOSITIS [None]
  - LUPUS NEPHRITIS [None]
  - MYOCARDITIS [None]
